FAERS Safety Report 8078962-3 (Version None)
Quarter: 2012Q1

REPORT INFORMATION
  Report Type: 
  Country: None (occurrence: None)
  Receive Date: 20120128
  Receipt Date: 20110728
  Transmission Date: 20120608
  Serious: No
  Sender: FDA-Public Use
  Company Number: US-ABBOTT-11P-163-0734104-00

PATIENT
  Sex: Female
  Weight: 89.892 kg

DRUGS (1)
  1. HUMIRA [Suspect]
     Indication: RHEUMATOID ARTHRITIS
     Dates: start: 20090101

REACTIONS (5)
  - INJECTION SITE PAIN [None]
  - NECK PAIN [None]
  - BACK PAIN [None]
  - DRUG INEFFECTIVE [None]
  - BONE PAIN [None]
